FAERS Safety Report 8419743-8 (Version None)
Quarter: 2012Q2

REPORT INFORMATION
  Report Type: 
  Country: None (occurrence: None)
  Receive Date: 20120607
  Receipt Date: 20120601
  Transmission Date: 20120825
  Serious: Yes (Congenital Anomaly, Other)
  Sender: FDA-Public Use
  Company Number: US-ACTELION-A-US2012-61517

PATIENT

DRUGS (6)
  1. TRACLEER [Suspect]
     Indication: PULMONARY ARTERIAL HYPERTENSION
     Dosage: UNK
     Route: 048
     Dates: start: 20110509, end: 20120207
  2. REVATIO [Concomitant]
  3. PREDNISONE [Concomitant]
  4. IMURAN [Concomitant]
  5. CALCIUM CHANNEL BLOCKERS [Concomitant]
  6. PLAQUENIL [Concomitant]

REACTIONS (3)
  - CLEFT LIP AND PALATE [None]
  - UMBILICAL CORD VASCULAR DISORDER [None]
  - PREGNANCY [None]
